FAERS Safety Report 16064499 (Version 1)
Quarter: 2019Q1

REPORT INFORMATION
  Report Type: Spontaneous
  Country: US (occurrence: US)
  Receive Date: 20190312
  Receipt Date: 20190312
  Transmission Date: 20190418
  Serious: Yes (Hospitalization)
  Sender: FDA-Public Use
  Company Number: US-VIFOR (INTERNATIONAL) INC.-VIT-2019-02156

PATIENT
  Age: 64 Year
  Sex: Female

DRUGS (9)
  1. RENVELA [Concomitant]
     Active Substance: SEVELAMER CARBONATE
  2. SIMVASTATIN. [Concomitant]
     Active Substance: SIMVASTATIN
  3. HUMALOG [Concomitant]
     Active Substance: INSULIN LISPRO
  4. LISINOPRIL. [Concomitant]
     Active Substance: LISINOPRIL
  5. METOPROLOL SUCCINATE. [Concomitant]
     Active Substance: METOPROLOL SUCCINATE
  6. AMLODIPINE BESYLATE. [Concomitant]
     Active Substance: AMLODIPINE BESYLATE
  7. MULTIVITAMIN ADULT [Concomitant]
  8. LANTUS [Concomitant]
     Active Substance: INSULIN GLARGINE
  9. VELTASSA [Suspect]
     Active Substance: PATIROMER
     Indication: HYPERKALAEMIA
     Route: 048
     Dates: start: 20181010

REACTIONS (1)
  - Chest pain [Unknown]

NARRATIVE: CASE EVENT DATE: 20190303
